FAERS Safety Report 5987496-9 (Version None)
Quarter: 2008Q4

REPORT INFORMATION
  Report Type: 
  Country: None (occurrence: None)
  Receive Date: 20081125
  Receipt Date: 20081110
  Transmission Date: 20090506
  Serious: Yes (Other)
  Sender: FDA-Public Use
  Company Number: HAPL-003-08-GB

PATIENT
  Age: 5 Month
  Sex: Female

DRUGS (5)
  1. KEPIVANCE [Suspect]
     Indication: AUTOIMMUNE DISORDER
     Dosage: 6 UG/KG IV
     Route: 042
     Dates: start: 20081010, end: 20081210
  2. IMMUNE GLOBULIN (HUMAN) [Suspect]
     Indication: DRUG USE FOR UNKNOWN INDICATION
     Dates: start: 20080101, end: 20080101
  3. CYCLOSPORINE [Suspect]
     Indication: DRUG USE FOR UNKNOWN INDICATION
     Dates: start: 20080101, end: 20080101
  4. CYCLOPHOSPHAMIDE [Suspect]
     Indication: DRUG USE FOR UNKNOWN INDICATION
     Dates: start: 20080910, end: 20081210
  5. TREOSULFAN (TREOSULFAN) [Concomitant]

REACTIONS (4)
  - CONVULSION [None]
  - OFF LABEL USE [None]
  - RASH [None]
  - STEM CELL TRANSPLANT [None]
